FAERS Safety Report 8357552-9 (Version None)
Quarter: 2012Q2

REPORT INFORMATION
  Report Type: 
  Country: None (occurrence: None)
  Receive Date: 20120514
  Receipt Date: 20120504
  Transmission Date: 20120825
  Serious: Yes (Death, Other)
  Sender: FDA-Public Use
  Company Number: MX-ACTELION-A-CH2012-65313

PATIENT
  Age: 21 Year
  Sex: Female

DRUGS (2)
  1. TRACLEER [Suspect]
     Dosage: 125 MG, BID
     Route: 048
  2. TRACLEER [Suspect]
     Indication: PULMONARY ARTERIAL HYPERTENSION
     Dosage: 62.5 MG, BID
     Route: 048

REACTIONS (4)
  - CARDIAC OUTPUT DECREASED [None]
  - DYSPNOEA [None]
  - SUDDEN DEATH [None]
  - FATIGUE [None]
